FAERS Safety Report 4284143-1 (Version None)
Quarter: 2004Q1

REPORT INFORMATION
  Report Type: 
  Country: None (occurrence: None)
  Receive Date: 20040203
  Receipt Date: 20040202
  Transmission Date: 20041129
  Serious: Yes (Death, Hospitalization)
  Sender: FDA-Public Use
  Company Number: ES-GLAXOSMITHKLINE-A0496222A

PATIENT
  Age: 73 Year
  Sex: Female

DRUGS (2)
  1. NAVELBINE [Suspect]
     Indication: BREAST CANCER
     Dosage: 42MG SEE DOSAGE TEXT
     Route: 042
     Dates: start: 20020227, end: 20020710
  2. GEMCITABINE [Concomitant]
     Indication: BREAST CANCER
     Dosage: 1600MG SEE DOSAGE TEXT
     Route: 042
     Dates: start: 20020227, end: 20020710

REACTIONS (2)
  - DISEASE PROGRESSION [None]
  - METASTASES TO CENTRAL NERVOUS SYSTEM [None]
